FAERS Safety Report 7067240-7 (Version None)
Quarter: 2010Q4

REPORT INFORMATION
  Report Type: 
  Country: None (occurrence: None)
  Receive Date: 20101028
  Receipt Date: 20101019
  Transmission Date: 20110411
  Serious: Yes (Other)
  Sender: FDA-Public Use
  Company Number: US-BIOGENIDEC-2010BI036427

PATIENT
  Age: 42 Year
  Sex: Female

DRUGS (2)
  1. AVONEX [Suspect]
     Indication: MULTIPLE SCLEROSIS
     Route: 030
     Dates: start: 19960601, end: 20030101
  2. AVONEX [Suspect]
     Route: 030
     Dates: start: 20030101, end: 20091001

REACTIONS (1)
  - ABORTION SPONTANEOUS [None]
